FAERS Safety Report 5620547-X (Version None)
Quarter: 2008Q1

REPORT INFORMATION
  Report Type: 
  Country: None (occurrence: None)
  Receive Date: 20080208
  Receipt Date: 20080129
  Transmission Date: 20080703
  Serious: Yes (Hospitalization)
  Sender: FDA-Public Use
  Company Number: US-ELI_LILLY_AND_COMPANY-US200801001665

PATIENT
  Age: 42 Year
  Sex: Female

DRUGS (7)
  1. CYMBALTA [Suspect]
     Dosage: 30 MG, DAILY (1/D)
     Route: 048
     Dates: start: 20071031
  2. CYMBALTA [Suspect]
     Dosage: 60 MG, UNK
  3. SUBOXONE [Concomitant]
     Indication: DRUG DEPENDENCE
     Dosage: 14 MG, DAILY (1/D)
     Dates: start: 20071031
  4. AMBIEN [Concomitant]
     Dosage: UNK, AS NEEDED
  5. LAMICTAL [Concomitant]
     Dosage: 100 MG, EACH MORNING
  6. EFFEXOR XR [Concomitant]
     Dosage: 150 MG, DAILY (1/D)
  7. XANAX [Concomitant]
     Dosage: 1 MG, 3/D

REACTIONS (6)
  - ABDOMINAL DISCOMFORT [None]
  - ALANINE AMINOTRANSFERASE INCREASED [None]
  - ASPARTATE AMINOTRANSFERASE INCREASED [None]
  - BLOOD BILIRUBIN INCREASED [None]
  - DEPRESSION [None]
  - JAUNDICE [None]
